FAERS Safety Report 9164594 (Version 1)
Quarter: 2013Q1

REPORT INFORMATION
  Report Type: Spontaneous
  Country: US (occurrence: None)
  Receive Date: 20130225
  Receipt Date: 20130225
  Transmission Date: 20140127
  Serious: Yes (Hospitalization)
  Sender: FDA-Public Use
  Company Number: 2013SUN00154

PATIENT
  Age: 49 Year
  Sex: Male

DRUGS (1)
  1. LEVETIRACETAM TABLETS [Suspect]
     Indication: PRODUCT USED FOR UNKNOWN INDICATION
     Dosage: (22500MG)

REACTIONS (6)
  - Intentional overdose [None]
  - Suicide attempt [None]
  - Blood urea decreased [None]
  - Carbon dioxide decreased [None]
  - Withdrawal syndrome [None]
  - Anxiety [None]
